FAERS Safety Report 18062890 (Version 5)
Quarter: 2021Q2

REPORT INFORMATION
  Report Type: Report from Study
  Country: None (occurrence: US)
  Receive Date: 20200724
  Receipt Date: 20210407
  Transmission Date: 20210717
  Serious: Yes (Hospitalization, Other)
  Sender: FDA-Public Use
  Company Number: US-ABBVIE-20K-163-3492127-00

PATIENT
  Age: 56 Year
  Sex: Male

DRUGS (3)
  1. HUMIRA [Suspect]
     Active Substance: ADALIMUMAB
     Indication: CROHN^S DISEASE
     Route: 058
  2. HUMIRA [Suspect]
     Active Substance: ADALIMUMAB
     Route: 058
  3. HUMIRA [Suspect]
     Active Substance: ADALIMUMAB
     Route: 058

REACTIONS (18)
  - Rectourethral fistula [Not Recovered/Not Resolved]
  - Device related infection [Not Recovered/Not Resolved]
  - Wound secretion [Unknown]
  - Crohn^s disease [Unknown]
  - Diverticulitis [Unknown]
  - Wrong technique in product usage process [Unknown]
  - Purulence [Not Recovered/Not Resolved]
  - Inflammation [Not Recovered/Not Resolved]
  - Urinary incontinence [Unknown]
  - Flatulence [Not Recovered/Not Resolved]
  - Weight increased [Not Recovered/Not Resolved]
  - Anal incontinence [Unknown]
  - Impaired healing [Not Recovered/Not Resolved]
  - Abdominal hernia [Not Recovered/Not Resolved]
  - Accident [Recovering/Resolving]
  - Unevaluable event [Not Recovered/Not Resolved]
  - Infection [Unknown]
  - Drug ineffective [Unknown]

NARRATIVE: CASE EVENT DATE: 2019
